FAERS Safety Report 10156736 (Version 1)
Quarter: 2014Q2

REPORT INFORMATION
  Report Type: Report from Study
  Country: US (occurrence: US)
  Receive Date: 20140507
  Receipt Date: 20140507
  Transmission Date: 20141212
  Serious: Yes (Other)
  Sender: FDA-Public Use
  Company Number: US-ASTRAZENECA-2014SE29309

PATIENT
  Age: 197 Month
  Sex: Female
  Weight: 59 kg

DRUGS (7)
  1. SEROQUEL [Suspect]
     Indication: DEPRESSION
     Route: 048
     Dates: start: 201210, end: 201211
  2. SEROQUEL [Suspect]
     Indication: SUICIDAL IDEATION
     Route: 048
     Dates: start: 201210, end: 201211
  3. SEROQUEL [Suspect]
     Indication: DEPRESSION
     Dosage: QUETIAPINE FUMARATE, 400MG NIGHT
     Route: 048
     Dates: start: 201211, end: 201402
  4. SEROQUEL [Suspect]
     Indication: SUICIDAL IDEATION
     Dosage: QUETIAPINE FUMARATE, 400MG NIGHT
     Route: 048
     Dates: start: 201211, end: 201402
  5. SEROQUEL [Suspect]
     Indication: DEPRESSION
     Dosage: QUETIAPINE FUMARATE, 300MG NIGHT
     Route: 048
     Dates: start: 201402
  6. SEROQUEL [Suspect]
     Indication: SUICIDAL IDEATION
     Dosage: QUETIAPINE FUMARATE, 300MG NIGHT
     Route: 048
     Dates: start: 201402
  7. ZOLOFT [Concomitant]
     Indication: DEPRESSION
     Route: 048
     Dates: start: 201211

REACTIONS (5)
  - Suicidal ideation [Not Recovered/Not Resolved]
  - Sleep disorder [Not Recovered/Not Resolved]
  - Decreased appetite [Not Recovered/Not Resolved]
  - Gastroenteritis viral [Not Recovered/Not Resolved]
  - Intentional product misuse [Unknown]
